FAERS Safety Report 19976646 (Version 2)
Quarter: 2021Q4

REPORT INFORMATION
  Report Type: Report from Study
  Country: US (occurrence: US)
  Receive Date: 20211021
  Receipt Date: 20211025
  Transmission Date: 20220303
  Serious: Yes (Other)
  Sender: FDA-Public Use
  Company Number: US-KOREA IPSEN PHARMA-2021-25610

PATIENT
  Age: 48 Year
  Sex: Female

DRUGS (1)
  1. SOMATULINE DEPOT [Suspect]
     Active Substance: LANREOTIDE ACETATE
     Indication: Acromegaly
     Dosage: 90MG/0.3ML
     Route: 058
     Dates: start: 201911

REACTIONS (3)
  - Hysterectomy [Recovered/Resolved]
  - Injection site mass [Recovering/Resolving]
  - Biliary colic [Recovering/Resolving]

NARRATIVE: CASE EVENT DATE: 20200901
